FAERS Safety Report 18368084 (Version 4)
Quarter: 2020Q4

REPORT INFORMATION
  Report Type: Report from Study
  Country: AT (occurrence: AT)
  Receive Date: 20201009
  Receipt Date: 20201201
  Transmission Date: 20210114
  Serious: Yes (Hospitalization)
  Sender: FDA-Public Use
  Company Number: AT-MORPHOSYS AG-2020-MOR000819-AT

PATIENT

DRUGS (28)
  1. TAFASITAMAB [Suspect]
     Active Substance: TAFASITAMAB
     Dosage: 12 MILLIGRAM/KILOGRAM, SINGLE
     Route: 042
     Dates: start: 20200729, end: 20200729
  2. R-CHOP [Suspect]
     Active Substance: CYCLOPHOSPHAMIDE\DOXORUBICIN\PREDNISONE\RITUXIMAB\VINCRISTINE
     Indication: DIFFUSE LARGE B-CELL LYMPHOMA
     Dosage: UNK
     Route: 065
     Dates: start: 20200702
  3. ADAMON [Concomitant]
     Indication: POST HERPETIC NEURALGIA
     Dosage: UNK, PRN
     Route: 048
     Dates: start: 20200715
  4. METAMIZOL SODIUM [Concomitant]
     Active Substance: METAMIZOL SODIUM
     Indication: POST HERPETIC NEURALGIA
     Dosage: UNK, PRN
     Route: 048
     Dates: start: 20200715
  5. TAFASITAMAB [Suspect]
     Active Substance: TAFASITAMAB
     Indication: DIFFUSE LARGE B-CELL LYMPHOMA
     Dosage: 12 MILLIGRAM/KILOGRAM, SINGLE
     Route: 042
     Dates: start: 20200701, end: 20200701
  6. ALLOPURINOL. [Concomitant]
     Active Substance: ALLOPURINOL
     Indication: ACUTE KIDNEY INJURY
     Dosage: 300 MILLIGRAM, QD
     Route: 048
     Dates: start: 20200828
  7. PASPERTIN [Concomitant]
     Indication: PREMEDICATION
     Dosage: 10 MILLIGRAM, SINGLE
     Route: 042
     Dates: start: 20200910, end: 20200910
  8. TAFASITAMAB [Suspect]
     Active Substance: TAFASITAMAB
     Dosage: 12 MILLIGRAM/KILOGRAM, SINGLE
     Route: 042
     Dates: start: 20200708, end: 20200708
  9. PASPERTIN [Concomitant]
     Indication: NAUSEA
     Dosage: UNK, PRN
     Route: 048
     Dates: start: 20200729
  10. ZOFRAN [Concomitant]
     Active Substance: ONDANSETRON HYDROCHLORIDE
     Indication: NAUSEA
     Dosage: 8 MILLIGRAM, QD
     Route: 048
     Dates: start: 20200729
  11. TAFASITAMAB [Suspect]
     Active Substance: TAFASITAMAB
     Dosage: 12 MILLIGRAM/KILOGRAM, SINGLE
     Route: 042
     Dates: start: 20200722, end: 20200722
  12. TAFASITAMAB [Suspect]
     Active Substance: TAFASITAMAB
     Dosage: 12 MILLIGRAM/KILOGRAM, SINGLE
     Route: 042
     Dates: start: 20200909, end: 20200909
  13. TAFASITAMAB [Suspect]
     Active Substance: TAFASITAMAB
     Dosage: 12 MILLIGRAM/KILOGRAM, SINGLE
     Route: 042
     Dates: start: 20200923, end: 20200923
  14. PSYCHOPAX [Concomitant]
     Active Substance: DIAZEPAM
     Indication: NAUSEA
     Dosage: 10 GTT DROPS, PRN
     Route: 048
     Dates: start: 20200729
  15. INHIXA [Concomitant]
     Active Substance: ENOXAPARIN SODIUM
     Indication: THROMBOSIS PROPHYLAXIS
     Dosage: 4000 INTERNATIONAL UNIT, QD
     Route: 058
     Dates: start: 20200731, end: 20200908
  16. TAFASITAMAB [Suspect]
     Active Substance: TAFASITAMAB
     Dosage: 12 MILLIGRAM/KILOGRAM, SINGLE
     Route: 042
     Dates: start: 20200812, end: 20200812
  17. TAFASITAMAB [Suspect]
     Active Substance: TAFASITAMAB
     Dosage: 12 MILLIGRAM/KILOGRAM, SINGLE
     Route: 042
     Dates: start: 20200916, end: 20200916
  18. PASPERTIN [Concomitant]
     Indication: VOMITING
     Dosage: 1 DOSAGE FORM, SINGLE
     Route: 042
     Dates: start: 20200923, end: 20200923
  19. PREGABALIN. [Concomitant]
     Active Substance: PREGABALIN
     Indication: HERPES ZOSTER
     Dosage: 50 MILLIGRAM, PRN
     Route: 048
     Dates: start: 20200625
  20. MYCOSTATION [Concomitant]
     Indication: MUCOSAL INFLAMMATION
     Dosage: UNK, PRN
     Route: 048
     Dates: start: 20200821
  21. XYLOCAIN VISC??S [Concomitant]
     Indication: MUCOSAL INFLAMMATION
     Dosage: UNK, PRN
     Route: 048
     Dates: start: 20200826
  22. BEPANTHEN [Concomitant]
     Indication: MUCOSAL INFLAMMATION
     Dosage: 5 MILLILITER, TID
     Route: 048
     Dates: start: 20200826
  23. TAFASITAMAB [Suspect]
     Active Substance: TAFASITAMAB
     Dosage: 12 MILLIGRAM/KILOGRAM, SINGLE
     Route: 042
     Dates: start: 20200715, end: 20200715
  24. TAFASITAMAB [Suspect]
     Active Substance: TAFASITAMAB
     Dosage: 12 MILLIGRAM/KILOGRAM, SINGLE
     Route: 042
     Dates: start: 20200807, end: 20200807
  25. TAFASITAMAB [Suspect]
     Active Substance: TAFASITAMAB
     Dosage: 12 MILLIGRAM/KILOGRAM, SINGLE
     Route: 042
     Dates: start: 20200819, end: 20200819
  26. LISINOPRIL. [Concomitant]
     Active Substance: LISINOPRIL
     Indication: HYPERTENSION
     Dosage: 15 MILLIGRAM, BID
     Route: 048
     Dates: start: 20200729
  27. PANTOPRAZOL [Concomitant]
     Active Substance: PANTOPRAZOLE SODIUM
     Indication: GASTRIC DISORDER
     Dosage: 40 MILLIGRAM, QD
     Route: 048
     Dates: start: 20200807
  28. MICROKALIUM [Concomitant]
     Indication: HYPOKALAEMIA
     Dosage: 1 DOSAGE FORM, QID
     Route: 048
     Dates: start: 20200809

REACTIONS (1)
  - Pulmonary embolism [Recovered/Resolved]

NARRATIVE: CASE EVENT DATE: 20200930
